FAERS Safety Report 6204368-5 (Version None)
Quarter: 2009Q2

REPORT INFORMATION
  Report Type: 
  Country: None (occurrence: None)
  Receive Date: 20090527
  Receipt Date: 20090518
  Transmission Date: 20091009
  Serious: Yes (Other)
  Sender: FDA-Public Use
  Company Number: CO-ELI_LILLY_AND_COMPANY-CO200905001099

PATIENT
  Age: 48 Year
  Sex: Female

DRUGS (11)
  1. FORTEO [Suspect]
     Indication: OSTEOPOROSIS
     Dosage: 20 UG, DAILY (1/D)
     Route: 058
     Dates: start: 20090304, end: 20090301
  2. ARALEN [Concomitant]
     Dosage: UNK, UNKNOWN
     Route: 065
     Dates: end: 20090301
  3. PREDNISOLONE [Concomitant]
     Dosage: UNK, UNKNOWN
     Route: 065
     Dates: end: 20090301
  4. HUMIRA [Concomitant]
     Dosage: UNK, UNKNOWN
     Route: 065
     Dates: end: 20090301
  5. METHOTREXATE [Concomitant]
     Dosage: UNK, UNKNOWN
     Route: 065
     Dates: end: 20090301
  6. OMEPRAZOLE [Concomitant]
     Dosage: UNK, UNKNOWN
     Route: 065
     Dates: end: 20090301
  7. ENALAPRIL MALEATE [Concomitant]
     Dosage: UNK, UNKNOWN
     Route: 065
     Dates: end: 20090301
  8. FUROSEMIDE [Concomitant]
     Dosage: UNK, UNKNOWN
     Route: 065
     Dates: end: 20090301
  9. FOLIC ACID [Concomitant]
     Dosage: UNK, UNKNOWN
     Route: 065
     Dates: end: 20090301
  10. ACETAMINOPHEN [Concomitant]
     Dosage: UNK, UNKNOWN
     Route: 065
     Dates: end: 20090301
  11. CALCIUM [Concomitant]
     Dosage: UNK, UNKNOWN
     Route: 065
     Dates: end: 20090301

REACTIONS (1)
  - HEPATITIS [None]
